FAERS Safety Report 13385388 (Version 1)
Quarter: 2017Q1

REPORT INFORMATION
  Report Type: Spontaneous
  Country: US (occurrence: US)
  Receive Date: 20170330
  Receipt Date: 20170330
  Transmission Date: 20170429
  Serious: Yes (Life-Threatening, Hospitalization)
  Sender: FDA-Public Use
  Company Number: None

PATIENT
  Age: 53 Year
  Sex: Female
  Weight: 67.5 kg

DRUGS (8)
  1. IBUPROPHEN [Concomitant]
     Active Substance: IBUPROFEN
  2. AVELOX [Suspect]
     Active Substance: MOXIFLOXACIN HYDROCHLORIDE
     Indication: SINUSITIS
     Route: 048
     Dates: start: 20010802, end: 20010813
  3. GABAPENTIN. [Concomitant]
     Active Substance: GABAPENTIN
  4. AVELOX [Suspect]
     Active Substance: MOXIFLOXACIN HYDROCHLORIDE
     Indication: UPPER RESPIRATORY TRACT INFECTION
     Route: 048
     Dates: start: 20010802, end: 20010813
  5. LEVAQUIN [Suspect]
     Active Substance: LEVOFLOXACIN
     Indication: INFECTION
     Route: 048
     Dates: start: 20010901, end: 20010911
  6. LISINOPRIL. [Concomitant]
     Active Substance: LISINOPRIL
  7. ONE-A-DAY NOS [Concomitant]
     Active Substance: MINERALS\VITAMINS
  8. ASPIRIN. [Concomitant]
     Active Substance: ASPIRIN

REACTIONS (1)
  - Aortic dilatation [None]

NARRATIVE: CASE EVENT DATE: 20141224
